FAERS Safety Report 22193337 (Version 1)
Quarter: 2023Q2

REPORT INFORMATION
  Report Type: Spontaneous
  Country: US (occurrence: None)
  Receive Date: 20230410
  Receipt Date: 20230410
  Transmission Date: 20230722
  Serious: Yes (Death, Life-Threatening)
  Sender: FDA-Public Use
  Company Number: None

PATIENT
  Age: 100 Year
  Sex: Female
  Weight: 45.36 kg

DRUGS (4)
  1. CITROMA [Suspect]
     Active Substance: MAGNESIUM CITRATE
     Indication: Constipation
     Dosage: 7.5 MG 1 TIME DAILY AT NIGHT BY MOUTH?
     Route: 048
     Dates: start: 2017, end: 20221115
  2. HYDROCHLOROTHIAZIDE [Concomitant]
     Active Substance: HYDROCHLOROTHIAZIDE
  3. LEVOTHYROXINE [Concomitant]
     Active Substance: LEVOTHYROXINE
  4. VITAMIN D [Concomitant]
     Active Substance: VITAMIN D NOS

REACTIONS (10)
  - Diarrhoea [None]
  - Decreased appetite [None]
  - Abdominal pain upper [None]
  - Feeling abnormal [None]
  - Urinary tract infection [None]
  - Asthenia [None]
  - Dysstasia [None]
  - Toxicity to various agents [None]
  - Product substitution issue [None]
  - Product formulation issue [None]

NARRATIVE: CASE EVENT DATE: 20220801
